FAERS Safety Report 11926313 (Version 2)
Quarter: 2016Q3

REPORT INFORMATION
  Report Type: Report from Study
  Country: US (occurrence: US)
  Receive Date: 20160119
  Receipt Date: 20160922
  Transmission Date: 20161109
  Serious: Yes (Other)
  Sender: FDA-Public Use
  Company Number: US-GILEAD-2016-0192899

PATIENT
  Age: 61 Year
  Sex: Female

DRUGS (12)
  1. VELETRI [Concomitant]
     Active Substance: EPOPROSTENOL
     Dosage: 54 NG/KG/MIN
     Route: 042
  2. AMBRISENTAN [Suspect]
     Active Substance: AMBRISENTAN
     Dosage: 10 MG, QD
     Route: 048
     Dates: start: 201201, end: 20160112
  3. AMBRISENTAN [Suspect]
     Active Substance: AMBRISENTAN
     Dosage: 5 MG, QD
     Route: 048
     Dates: start: 20160113
  4. NORTRIPTYLINE [Concomitant]
     Active Substance: NORTRIPTYLINE
     Dosage: 50 MG, QHS
  5. EDECRIN                            /00020501/ [Concomitant]
     Dosage: 50 MG, BID
  6. ALBUTEROL                          /00139501/ [Concomitant]
     Active Substance: ALBUTEROL
     Dosage: 2.5 MG, UNK
     Route: 055
  7. VELETRI [Concomitant]
     Active Substance: EPOPROSTENOL
     Dosage: 1.5 MG, CONTINUOUS
     Route: 042
  8. FLUTICASONE [Concomitant]
     Active Substance: FLUTICASONE\FLUTICASONE PROPIONATE
     Dosage: 50 UG X 2 DF, BID
  9. WARFARIN [Concomitant]
     Active Substance: WARFARIN
     Dosage: 5 MG, QD
  10. SILDENAFIL. [Concomitant]
     Active Substance: SILDENAFIL
     Dosage: 40 MG, TID
  11. DIGOXIN. [Concomitant]
     Active Substance: DIGOXIN
     Dosage: 250 UG, QD
  12. AMBRISENTAN [Suspect]
     Active Substance: AMBRISENTAN
     Indication: PULMONARY ARTERIAL HYPERTENSION
     Dosage: 5 MG, QD
     Route: 048
     Dates: start: 201112, end: 201201

REACTIONS (2)
  - Liver function test increased [Unknown]
  - Liver function test increased [Unknown]

NARRATIVE: CASE EVENT DATE: 201511
